FAERS Safety Report 24888135 (Version 1)
Quarter: 2025Q1

REPORT INFORMATION
  Report Type: Report from Study
  Country: US (occurrence: US)
  Receive Date: 20250127
  Receipt Date: 20250127
  Transmission Date: 20250409
  Serious: No
  Sender: ACADIA PHARMACEUTICALS
  Company Number: US-ACADIA PHARMACEUTICALS INC.-ACA-2025-TRF-000319

PATIENT
  Sex: Female

DRUGS (1)
  1. DAYBUE [Suspect]
     Active Substance: TROFINETIDE
     Indication: Rett syndrome
     Dosage: 30 MILLILITER, BID

REACTIONS (8)
  - Illness [Recovered/Resolved]
  - Abdominal discomfort [Recovered/Resolved]
  - Mood swings [Not Recovered/Not Resolved]
  - Gastroenteritis viral [Recovered/Resolved]
  - Aggression [Not Recovered/Not Resolved]
  - Screaming [Not Recovered/Not Resolved]
  - Abnormal behaviour [Not Recovered/Not Resolved]
  - Diarrhoea [Recovered/Resolved]
